FAERS Safety Report 19673537 (Version 1)
Quarter: 2021Q3

REPORT INFORMATION
  Report Type: Spontaneous
  Country: US (occurrence: US)
  Receive Date: 20210809
  Receipt Date: 20210809
  Transmission Date: 20211014
  Serious: No
  Sender: FDA-Public Use
  Company Number: US-SA-2021SA256111

PATIENT
  Age: 85 Year
  Sex: Female

DRUGS (10)
  1. GABAPENTIN. [Concomitant]
     Active Substance: GABAPENTIN
  2. JANUVIA [Concomitant]
     Active Substance: SITAGLIPTIN PHOSPHATE
  3. SIMVASTATIN. [Suspect]
     Active Substance: SIMVASTATIN
  4. AMLODIPINE [Concomitant]
     Active Substance: AMLODIPINE BESYLATE
  5. REVLIMID [Suspect]
     Active Substance: LENALIDOMIDE
     Dosage: 2.5 MG, QD
     Route: 048
  6. VELCADE [Concomitant]
     Active Substance: BORTEZOMIB
  7. PLAVIX [Suspect]
     Active Substance: CLOPIDOGREL BISULFATE
  8. LOSARTAN. [Concomitant]
     Active Substance: LOSARTAN
  9. FUROSEMIDE. [Concomitant]
     Active Substance: FUROSEMIDE
  10. AMLODIPINE;LOSARTAN [Concomitant]
     Active Substance: AMLODIPINE\LOSARTAN

REACTIONS (1)
  - Constipation [Not Recovered/Not Resolved]
